FAERS Safety Report 8861420 (Version 1)
Quarter: 2012Q4

REPORT INFORMATION
  Report Type: Spontaneous
  Country: US (occurrence: None)
  Receive Date: 20121022
  Receipt Date: 20121022
  Transmission Date: 20130627
  Serious: Yes (Other)
  Sender: FDA-Public Use
  Company Number: 2012P1060970

PATIENT
  Sex: Male

DRUGS (1)
  1. DEXEDRINE [Suspect]

REACTIONS (2)
  - Psychotic disorder [None]
  - Hallucination, auditory [None]
